FAERS Safety Report 7529381 (Version 4)
Quarter: 2014Q1

REPORT INFORMATION
  Report Type: Spontaneous
  Country: US (occurrence: US)
  Receive Date: 20100805
  Receipt Date: 20140124
  Transmission Date: 20141002
  Serious: Yes (Other)
  Sender: FDA-Public Use
  Company Number: US-BAYER-201029253NA

PATIENT
  Age: 32 Year
  Sex: Female
  Weight: 57 kg

DRUGS (7)
  1. YASMIN [Suspect]
     Indication: CONTRACEPTION
     Route: 048
     Dates: start: 200511, end: 200901
  2. RESPIRATORY SYSTEM [Concomitant]
     Dosage: 5 MG, UNK
     Route: 048
  3. FEXOFENADINE [Concomitant]
     Route: 048
  4. SINGULAIR [Concomitant]
     Dosage: 10 MG, QD
     Route: 048
  5. FLONASE [Concomitant]
     Route: 045
  6. MAXALT-MLT [Concomitant]
     Indication: HEADACHE
     Route: 048
  7. ZITHROMAX [Concomitant]
     Route: 048

REACTIONS (5)
  - Cholelithiasis [Unknown]
  - Cholecystitis chronic [None]
  - Abdominal pain [Unknown]
  - Post cholecystectomy syndrome [Unknown]
  - Pain [Unknown]
